FAERS Safety Report 21063566 (Version 1)
Quarter: 2022Q3

REPORT INFORMATION
  Report Type: Other
  Country: GB (occurrence: GB)
  Receive Date: 20220711
  Receipt Date: 20220711
  Transmission Date: 20221027
  Serious: Yes (Disabling, Other)
  Sender: FDA-Public Use
  Company Number: None

PATIENT
  Age: 77 Year
  Sex: Female
  Weight: 84 kg

DRUGS (10)
  1. FLUOXETINE [Suspect]
     Active Substance: FLUOXETINE HYDROCHLORIDE
     Indication: Product used for unknown indication
     Dosage: UNK, CAPSULE (START DATE 12 JUN 2022)
     Route: 048
  2. DIAZEPAM [Concomitant]
     Active Substance: DIAZEPAM
     Indication: Product used for unknown indication
     Dosage: UNK, BID (START DATE 04 JUL 2022) (2 MILLIGRAM TABLETS)
     Route: 065
  3. DIAZEPAM [Concomitant]
     Active Substance: DIAZEPAM
     Dosage: UNK, QID (ONE  OR TWO AS DIRECTED - FOUR TIMES A DAY WHEN REQUIRED AND AT NIGHT,START DATE 27 MAY 20
     Route: 065
  4. EXEMESTANE [Concomitant]
     Active Substance: EXEMESTANE
     Indication: Product used for unknown indication
     Dosage: UNK, QD (START DATE : 24 JUN 2022,ONE TABLET ONCE DAILY)
     Route: 065
  5. LEVOTHYROXINE [Concomitant]
     Active Substance: LEVOTHYROXINE
     Indication: Product used for unknown indication
     Dosage: UNK, QD(START DATE ON 07 JUN 2022,ONE TABLET ONCE DAY) (100 MICROGRAM TABLETS)
     Route: 065
  6. LEVOTHYROXINE [Concomitant]
     Active Substance: LEVOTHYROXINE
     Dosage: UNK,(START DATE 25 MAY 2022 AND STOP DATE:07 JUN 2022,ONE TABLET ONCE A DAY) (25 MICROGRAM TABLETS)
     Route: 065
  7. LEVOTHYROXINE [Concomitant]
     Active Substance: LEVOTHYROXINE
     Dosage: UNK,(START DATE 25 MAY 2022,ONE TABLET ONCE A DAY) (100 MICROGRAM TABLETS)
     Route: 065
  8. LEVOTHYROXINE [Concomitant]
     Active Substance: LEVOTHYROXINE
     Dosage: UNK,(START DATE 07 JUN 2022,ONE TABLET ONCE A DAY) (100 MICROGRAM TABLETS)
     Route: 065
  9. PROMETHAZINE HYDROCHLORIDE [Concomitant]
     Active Substance: PROMETHAZINE HYDROCHLORIDE
     Indication: Product used for unknown indication
     Dosage: UNK, AT BED TIME (ONE AT NIGHT START DATE 27 MAY 2022)
     Route: 065
  10. ROSUVASTATIN [Concomitant]
     Active Substance: ROSUVASTATIN
     Indication: Product used for unknown indication
     Dosage: UNK, QD (START DATE 25 APR 2022 ONE TABLET DAILY)
     Route: 065

REACTIONS (2)
  - Suicidal ideation [Recovered/Resolved]
  - Adverse drug reaction [Recovered/Resolved]

NARRATIVE: CASE EVENT DATE: 20220612
